FAERS Safety Report 7774518-8 (Version None)
Quarter: 2011Q3

REPORT INFORMATION
  Report Type: 
  Country: None (occurrence: None)
  Receive Date: 20110923
  Receipt Date: 20110923
  Transmission Date: 20111222
  Serious: Yes (Other)
  Sender: FDA-Public Use
  Company Number: None

PATIENT
  Sex: Female
  Weight: 70.76 kg

DRUGS (1)
  1. CELEBREX [Suspect]
     Indication: PAIN
     Dosage: 1 CAPSULE
     Route: 048
     Dates: start: 20110515, end: 20110921

REACTIONS (10)
  - SKIN PAPILLOMA [None]
  - HYPOPNOEA [None]
  - PRURITUS [None]
  - SELF-MEDICATION [None]
  - MYOPIA [None]
  - SWELLING [None]
  - MALAISE [None]
  - RASH [None]
  - SPEECH DISORDER [None]
  - EXPRESSIVE LANGUAGE DISORDER [None]
